FAERS Safety Report 11347719 (Version 3)
Quarter: 2015Q4

REPORT INFORMATION
  Report Type: Spontaneous
  Country: US (occurrence: US)
  Receive Date: 20150806
  Receipt Date: 20151217
  Transmission Date: 20160304
  Serious: No
  Sender: FDA-Public Use
  Company Number: US-PFIZER INC-2015263585

PATIENT
  Age: 68 Year
  Sex: Female
  Weight: 51 kg

DRUGS (4)
  1. MTX [Concomitant]
     Active Substance: METHOTREXATE SODIUM
     Dosage: UNK
  2. XELJANZ [Suspect]
     Active Substance: TOFACITINIB CITRATE
     Indication: RHEUMATOID ARTHRITIS
     Dosage: 5 MG, 2X/DAY
     Route: 048
  3. RESTASIS [Concomitant]
     Active Substance: CYCLOSPORINE
     Dosage: UNK
  4. XELJANZ [Suspect]
     Active Substance: TOFACITINIB CITRATE
     Dosage: 10 MG (1 TABLET), 2X/DAY
     Route: 048
     Dates: start: 20150501

REACTIONS (5)
  - Rash [Recovered/Resolved]
  - Headache [Unknown]
  - Herpes zoster [Unknown]
  - Drug dose omission [Unknown]
  - Epistaxis [Unknown]
